FAERS Safety Report 7854975 (Version 3)
Quarter: 2013Q3

REPORT INFORMATION
  Report Type: Spontaneous
  Country: US (occurrence: US)
  Receive Date: 20110314
  Receipt Date: 20130703
  Transmission Date: 20140515
  Serious: Yes (Hospitalization, Other)
  Sender: FDA-Public Use
  Company Number: US-ASTRAZENECA-2011SE12160

PATIENT
  Age: 69 Year
  Sex: Female
  Weight: 83 kg

DRUGS (30)
  1. SYMBICORT PMDI [Suspect]
     Indication: ASTHMA
     Dosage: 1 PUFF, BID
     Route: 055
     Dates: start: 20130624
  2. NEXIUM [Suspect]
     Indication: GASTRIC DISORDER
     Route: 048
  3. NEXIUM [Suspect]
     Indication: GASTRIC DISORDER
     Route: 048
  4. SEROQUEL [Suspect]
     Indication: BIPOLAR DISORDER
     Route: 048
     Dates: start: 2001
  5. SEROQUEL [Suspect]
     Indication: PANIC ATTACK
     Route: 048
     Dates: start: 2001
  6. SEROQUEL [Suspect]
     Indication: POST-TRAUMATIC STRESS DISORDER
     Route: 048
     Dates: start: 2001
  7. OMEPRAZOLE [Suspect]
     Indication: GASTROOESOPHAGEAL REFLUX DISEASE
     Route: 065
  8. RHINOCORT AQUA [Concomitant]
  9. CLONIDINE [Concomitant]
  10. VENTOLIN [Concomitant]
     Dosage: PRN
  11. LYRICA [Concomitant]
  12. ENABLEX [Concomitant]
  13. C-1000 PLUS BIOFLAVONOIDS [Concomitant]
  14. LUTEIN VISION [Concomitant]
  15. VITAMIN E [Concomitant]
  16. BETACAROTENE [Concomitant]
  17. AMITRIPTYLINE [Concomitant]
  18. SECTRAL [Concomitant]
  19. CLONAZEPAM [Concomitant]
  20. QUINAPRIL HCL [Concomitant]
  21. SINGULAIR [Concomitant]
     Dosage: DAILY
  22. LODRANE [Concomitant]
     Dosage: DAILY
  23. NORCO [Concomitant]
  24. REMERON GENERIC [Concomitant]
  25. SOMA [Concomitant]
  26. DILTIAZEM [Concomitant]
  27. TEKTURNA [Concomitant]
  28. CYMBALTA [Concomitant]
  29. MIRTAZAPINE [Concomitant]
     Indication: SLEEP DISORDER
     Route: 048
  30. OTHER MEDICATIONS [Concomitant]

REACTIONS (6)
  - Pneumonia [Unknown]
  - Foot fracture [Unknown]
  - Weight decreased [Unknown]
  - Diabetes mellitus [Unknown]
  - Drug dose omission [Unknown]
  - Intentional drug misuse [Unknown]
